FAERS Safety Report 16910782 (Version 1)
Quarter: 2019Q4

REPORT INFORMATION
  Report Type: Spontaneous
  Country: PT (occurrence: PT)
  Receive Date: 20191012
  Receipt Date: 20191012
  Transmission Date: 20200122
  Serious: Yes (Other)
  Sender: FDA-Public Use
  Company Number: PT-ROCHE-2435041

PATIENT
  Age: 66 Year
  Sex: Female

DRUGS (3)
  1. DEFLAZACORTE [Concomitant]
     Active Substance: DEFLAZACORT
     Dosage: 60 MILLIGRAM DAILY;
     Route: 065
  2. MYCOPHENOLATE MOFETIL. [Suspect]
     Active Substance: MYCOPHENOLATE MOFETIL
     Indication: PRODUCT USED FOR UNKNOWN INDICATION
     Route: 048
  3. MYCOPHENOLATE MOFETIL. [Suspect]
     Active Substance: MYCOPHENOLATE MOFETIL
     Route: 048

REACTIONS (1)
  - Pulmonary alveolar haemorrhage [Recovered/Resolved]
